FAERS Safety Report 4801838-9 (Version None)
Quarter: 2005Q4

REPORT INFORMATION
  Report Type: 
  Country: None (occurrence: None)
  Receive Date: 20051011
  Receipt Date: 20050930
  Transmission Date: 20060501
  Serious: Yes (Other)
  Sender: FDA-Public Use
  Company Number: 2005135697

PATIENT
  Age: 36 Year
  Sex: Male
  Weight: 81.6475 kg

DRUGS (1)
  1. UNISOM [Suspect]
     Indication: INTENTIONAL DRUG MISUSE
     Dosage: 16 SLEEPGELS ONE TIME, ORAL
     Route: 048
     Dates: start: 20050930, end: 20050930

REACTIONS (2)
  - FATIGUE [None]
  - OVERDOSE [None]
